FAERS Safety Report 6458607-6 (Version None)
Quarter: 2009Q4

REPORT INFORMATION
  Report Type: 
  Country: None (occurrence: None)
  Receive Date: 20091126
  Receipt Date: 20091124
  Transmission Date: 20100525
  Serious: Yes (Hospitalization, Other)
  Sender: FDA-Public Use
  Company Number: BE-BRISTOL-MYERS SQUIBB COMPANY-14864193

PATIENT
  Age: 48 Year
  Sex: Male
  Weight: 72 kg

DRUGS (8)
  1. CARBOPLATIN [Suspect]
     Indication: HEAD AND NECK CANCER
     Dosage: RECENT INF: 16NOV09 1DF=AUC1.5
     Route: 042
     Dates: start: 20091019
  2. CETUXIMAB [Suspect]
     Indication: HEAD AND NECK CANCER
     Dosage: RECENT INF: 16NOV09
     Route: 042
     Dates: start: 20090717
  3. CISPLATIN [Suspect]
     Indication: HEAD AND NECK CANCER
     Dosage: RECENT INF: 21SEP09
     Route: 042
     Dates: start: 20090717
  4. DOCETAXEL [Suspect]
     Indication: HEAD AND NECK CANCER
     Dosage: RECENT INF: 21SEP09
     Route: 042
     Dates: start: 20090717
  5. FLUOROURACIL [Suspect]
     Indication: HEAD AND NECK CANCER
     Dosage: (1432.6MG 1/3 WKS)(7163MG OVER 5 DAYS) RECENT INF: 25SEP09.
     Route: 042
     Dates: start: 20090717
  6. RADIOTHERAPY [Suspect]
     Indication: HEAD AND NECK CANCER
     Dosage: 1 DF - 2.0GY; RECENT DOSE: 16NOV09
     Route: 042
     Dates: start: 20091019
  7. DAFALGAN [Concomitant]
     Indication: PAIN
     Dosage: CONTINUED
     Route: 048
     Dates: start: 20091109
  8. MOUTHWASH [Concomitant]
     Indication: PROPHYLAXIS
     Dosage: CONTINUED
     Route: 048
     Dates: start: 20091109

REACTIONS (1)
  - DYSPHAGIA [None]
